FAERS Safety Report 10097144 (Version 2)
Quarter: 2014Q2

REPORT INFORMATION
  Report Type: Spontaneous
  Country: US (occurrence: US)
  Receive Date: 20140422
  Receipt Date: 20140422
  Transmission Date: 20141212
  Serious: No
  Sender: FDA-Public Use
  Company Number: US-GILEAD-2012-0065515

PATIENT
  Age: 74 Year
  Sex: Female

DRUGS (11)
  1. LETAIRIS [Suspect]
     Indication: PULMONARY ARTERIAL HYPERTENSION
     Dosage: 5 MG, QD
     Route: 048
     Dates: start: 20121026, end: 20121124
  2. LETAIRIS [Suspect]
     Dosage: 10 UNK, UNK
     Route: 048
     Dates: start: 20121214
  3. REVATIO [Concomitant]
  4. INDOMETHACIN                       /00003801/ [Concomitant]
  5. LASIX                              /00032601/ [Concomitant]
  6. PAXIL [Concomitant]
  7. ULORIC [Concomitant]
  8. OMEPRAZOLE [Concomitant]
  9. DIGOXIN [Concomitant]
  10. ZOCOR [Concomitant]
  11. LEVOTHROID [Concomitant]

REACTIONS (6)
  - Pruritus [Recovered/Resolved]
  - Back pain [Recovered/Resolved]
  - Decreased appetite [Recovered/Resolved]
  - Abdominal pain upper [Recovered/Resolved]
  - Peripheral swelling [Recovered/Resolved]
  - Nausea [Recovered/Resolved]
